FAERS Safety Report 11071913 (Version 1)
Quarter: 2015Q2

REPORT INFORMATION
  Report Type: Spontaneous
  Country: IT (occurrence: None)
  Receive Date: 20150424
  Receipt Date: 20150424
  Transmission Date: 20150821
  Serious: Yes (Other)
  Sender: FDA-Public Use
  Company Number: NL01PV15_38858

PATIENT
  Age: 11 Year
  Sex: Female
  Weight: 39 kg

DRUGS (2)
  1. UNKNOWN (LEVOCETIRIZINE DIHYDROCHLORIDE) [Suspect]
     Active Substance: LEVOCETIRIZINE DIHYDROCHLORIDE
     Indication: DYSPNOEA
     Dosage: 5 MG, TOTAL, ORAL
     Route: 048
     Dates: start: 20150225, end: 20150225
  2. BUDESONIDE (BUDESONIDE) [Suspect]
     Active Substance: BUDESONIDE
     Indication: DYSPNOEA
     Dosage: RESPIRATORY
     Route: 055
     Dates: start: 20150225, end: 20150225

REACTIONS (3)
  - Pain in extremity [None]
  - Rash [None]
  - Dyspnoea [None]

NARRATIVE: CASE EVENT DATE: 20150225
